FAERS Safety Report 5669785-0 (Version None)
Quarter: 2008Q1

REPORT INFORMATION
  Report Type: 
  Country: None (occurrence: None)
  Receive Date: 20080317
  Receipt Date: 20080307
  Transmission Date: 20080703
  Serious: Yes (Other)
  Sender: FDA-Public Use
  Company Number: US-PFIZER INC-2008021712

PATIENT
  Sex: Male

DRUGS (5)
  1. MICRONASE TAB [Suspect]
     Indication: DIABETES MELLITUS
     Route: 048
  2. NEXIUM [Concomitant]
  3. METFORMIN HCL [Concomitant]
  4. WELLBUTRIN [Concomitant]
  5. ZYRTEC [Concomitant]

REACTIONS (1)
  - PANCREATITIS [None]
